FAERS Safety Report 6165601-1 (Version None)
Quarter: 2009Q2

REPORT INFORMATION
  Report Type: 
  Country: None (occurrence: None)
  Receive Date: 20090423
  Receipt Date: 20090324
  Transmission Date: 20091009
  Serious: No
  Sender: FDA-Public Use
  Company Number: US-BAYER-200910971BCC

PATIENT
  Age: 54 Year
  Sex: Male
  Weight: 93 kg

DRUGS (7)
  1. ALEVE (CAPLET) [Suspect]
     Indication: HEADACHE
     Dosage: TOTAL DAILY DOSE: 440 MG  UNIT DOSE: 220 MG
     Route: 048
     Dates: start: 20090323
  2. PREDNISONE [Concomitant]
  3. TOPROL-XL [Concomitant]
  4. SYNTHROID [Concomitant]
  5. ANDRODERM [Concomitant]
  6. EFFEXOR [Concomitant]
  7. ASPIRIN [Concomitant]

REACTIONS (2)
  - ASTHENIA [None]
  - NAUSEA [None]
